FAERS Safety Report 7622864-0 (Version None)
Quarter: 2011Q3

REPORT INFORMATION
  Report Type: 
  Country: None (occurrence: None)
  Receive Date: 20110720
  Receipt Date: 20110713
  Transmission Date: 20111222
  Serious: Yes (Death)
  Sender: FDA-Public Use
  Company Number: JP-BAYER-2011-050269

PATIENT
  Age: 70 Year
  Sex: Male
  Weight: 56 kg

DRUGS (10)
  1. NEXAVAR [Suspect]
     Indication: HEPATIC NEOPLASM MALIGNANT
     Dosage: 400 MG, QD
     Route: 048
     Dates: start: 20110214, end: 20110608
  2. BARACLUDE [Concomitant]
     Indication: HEPATITIS B
     Dosage: DAILY DOSE .5 MG
     Route: 048
  3. OMEPRAZOLE [Concomitant]
     Indication: GASTRIC ULCER
     Dosage: DAILY DOSE 20 MG
     Route: 048
  4. VOLTAREN [Concomitant]
     Indication: CANCER PAIN
     Dosage: DAILY DOSE 25 MG
     Route: 048
  5. ALLEGRA [Concomitant]
     Dosage: DAILY DOSE 120 MG
     Route: 048
  6. CYTOTEC [Concomitant]
     Indication: DUODENAL ULCER
     Dosage: DAILY DOSE 200 ?G
     Route: 048
  7. MIYA BM [Concomitant]
     Indication: GASTRITIS
     Dosage: DAILY DOSE 60 MG
     Route: 048
     Dates: start: 20110601, end: 20110609
  8. METOPROLOL TARTRATE [Concomitant]
     Indication: HYPERTENSION
     Dosage: DAILY DOSE 20 MG
     Route: 048
  9. AMINOLEBAN EN [Concomitant]
     Indication: LIVER DISORDER
     Dosage: DAILY DOSE 50 G
     Route: 048
  10. URSO 250 [Concomitant]
     Indication: HEPATITIS B
     Dosage: DAILY DOSE 600 MG
     Route: 048
     Dates: start: 20110601, end: 20110609

REACTIONS (1)
  - HEPATIC FAILURE [None]
